FAERS Safety Report 10172472 (Version 3)
Quarter: 2014Q3

REPORT INFORMATION
  Report Type: Spontaneous
  Country: US (occurrence: US)
  Receive Date: 20140515
  Receipt Date: 20140815
  Transmission Date: 20150326
  Serious: Yes (Hospitalization, Other)
  Sender: FDA-Public Use
  Company Number: US-BAYER-2014-070296

PATIENT
  Age: 23 Year
  Sex: Female
  Weight: 82 kg

DRUGS (4)
  1. MIRENA [Suspect]
     Active Substance: LEVONORGESTREL
     Dosage: 20 MCG/24HR, CONT
     Route: 015
     Dates: start: 20070301, end: 20110512
  2. KLONOPIN [Concomitant]
     Active Substance: CLONAZEPAM
  3. TYLENOL [Concomitant]
     Active Substance: ACETAMINOPHEN
     Indication: ARTHRITIS
  4. LORTAB [Concomitant]
     Active Substance: ACETAMINOPHEN\HYDROCODONE BITARTRATE

REACTIONS (9)
  - Medical device pain [None]
  - Injury [None]
  - Anxiety [None]
  - Device issue [None]
  - Embedded device [None]
  - Pain [None]
  - Depression [None]
  - Genital haemorrhage [None]
  - Medical device discomfort [None]

NARRATIVE: CASE EVENT DATE: 201105
